FAERS Safety Report 7037585-5 (Version None)
Quarter: 2010Q4

REPORT INFORMATION
  Report Type: 
  Country: None (occurrence: None)
  Receive Date: 20101011
  Receipt Date: 20100928
  Transmission Date: 20110411
  Serious: Yes (Hospitalization, Other)
  Sender: FDA-Public Use
  Company Number: PHHY2010US54198

PATIENT
  Sex: Female

DRUGS (6)
  1. FEMARA [Suspect]
     Dosage: 2.5 MG, UNK
  2. MULTI-VITAMIN [Concomitant]
     Dosage: UNK
  3. XANAX [Concomitant]
     Dosage: UNK
  4. LEVOTHYROXINE [Concomitant]
     Dosage: UNK
  5. PAROXETINE HCL [Concomitant]
     Dosage: UNK
  6. HYDROCODONE [Concomitant]
     Dosage: UNK

REACTIONS (5)
  - BLOOD ELECTROLYTES DECREASED [None]
  - CERVICAL MYELOPATHY [None]
  - FALL [None]
  - HAEMORRHAGE [None]
  - NEOPLASM [None]
